FAERS Safety Report 4768216-2 (Version None)
Quarter: 2005Q3

REPORT INFORMATION
  Report Type: 
  Country: None (occurrence: None)
  Receive Date: 20050914
  Receipt Date: 20050901
  Transmission Date: 20060218
  Serious: Yes (Hospitalization)
  Sender: FDA-Public Use
  Company Number: US-KINGPHARMUSA00001-K200501154

PATIENT
  Age: 64 Year
  Sex: Female

DRUGS (15)
  1. ALTACE [Suspect]
     Indication: HYPERTENSION
     Dosage: 10 MG, QD
     Route: 048
     Dates: end: 20050307
  2. PRAVASTATIN [Suspect]
     Indication: HYPERLIPIDAEMIA
     Dosage: 20 MG, QD
     Route: 048
     Dates: end: 20050304
  3. PLAVIX [Suspect]
     Indication: ARTERIAL STENOSIS
     Dosage: 75 MG, QD
     Route: 048
     Dates: start: 20050218, end: 20050303
  4. CLONAZEPAM [Suspect]
     Indication: NEUROPATHY PERIPHERAL
     Dosage: EVERY DAY DROPS
     Route: 048
     Dates: end: 20050304
  5. DEROXAT [Suspect]
     Indication: DYSTHYMIC DISORDER
     Dosage: 20 MG, UNK
     Route: 048
     Dates: end: 20050308
  6. UN-ALFA [Concomitant]
     Indication: RENAL FAILURE
     Dosage: 1 U, UNK
     Route: 048
     Dates: end: 20050311
  7. FUROSEMIDE [Concomitant]
     Dosage: 5 U, UNK
     Route: 048
  8. EUPRESSYL [Concomitant]
     Dosage: 60 MG, UNK
     Route: 048
  9. LOXEN [Concomitant]
     Indication: HYPERTENSION
     Dosage: 100 MG, UNK
     Route: 048
  10. MIXTARD   /DEN/ [Concomitant]
     Indication: DIABETES MELLITUS
     Dosage: UNK, UNK
     Route: 058
  11. LORAZEPAM [Concomitant]
     Dosage: 2.5 MG, UNK
     Route: 048
  12. NOCTAMID [Concomitant]
     Dosage: 2 MG, UNK
     Route: 048
  13. LEVOTHYROXINE SODIUM [Concomitant]
     Indication: HYPOTHYROIDISM
     Dosage: 125 UG, UNK
     Route: 048
  14. INIPOMP [Concomitant]
     Dosage: 1 U, UNK
     Route: 048
  15. PARACETAMOL [Concomitant]
     Dosage: 6 U, UNK
     Route: 048

REACTIONS (4)
  - BLOOD CREATINE PHOSPHOKINASE INCREASED [None]
  - HAEMATOMA [None]
  - MUSCLE RUPTURE [None]
  - RHABDOMYOLYSIS [None]
